FAERS Safety Report 4700253-6 (Version None)
Quarter: 2005Q2

REPORT INFORMATION
  Report Type: 
  Country: None (occurrence: None)
  Receive Date: 20050627
  Receipt Date: 20050617
  Transmission Date: 20051028
  Serious: Yes (Other)
  Sender: FDA-Public Use
  Company Number: AU-JNJFOC-20050605168

PATIENT
  Sex: Male
  Weight: 85 kg

DRUGS (1)
  1. RISPERDAL [Suspect]
     Indication: SCHIZOPHRENIA
     Dates: start: 20040101, end: 20050501

REACTIONS (2)
  - BREAST CANCER IN SITU [None]
  - BREAST NEOPLASM [None]
